FAERS Safety Report 5887753-0 (Version None)
Quarter: 2008Q3

REPORT INFORMATION
  Report Type: 
  Country: None (occurrence: None)
  Receive Date: 20080916
  Receipt Date: 20080910
  Transmission Date: 20090109
  Serious: Yes (Death)
  Sender: FDA-Public Use
  Company Number: 2008AL010374

PATIENT
  Age: 83 Year
  Sex: Female

DRUGS (15)
  1. DIGOXIN [Suspect]
     Dosage: 0.125MG,DAILY,PO
     Route: 048
     Dates: start: 19950901, end: 20080401
  2. FOLIC ACID [Concomitant]
  3. PLAVIX [Concomitant]
  4. CIPROFLOXACIN [Concomitant]
  5. ATENOLOL [Concomitant]
  6. EFFEXOR XR [Concomitant]
  7. FOSOMAX [Concomitant]
  8. DETROL [Concomitant]
  9. SEROQUEL [Concomitant]
  10. SERTRALINE [Concomitant]
  11. WARFARIN SODIUM [Concomitant]
  12. AMPHETAMINE SULFATE [Concomitant]
  13. OXYBUTYMIN [Concomitant]
  14. AMPHETAMINE SULFATE [Concomitant]
  15. ALENDRONATE SODIUM [Concomitant]

REACTIONS (2)
  - SUDDEN DEATH [None]
  - VENTRICULAR FIBRILLATION [None]
